FAERS Safety Report 9461379 (Version 1)
Quarter: 2013Q3

REPORT INFORMATION
  Report Type: Spontaneous
  Country: FR (occurrence: FR)
  Receive Date: 20130816
  Receipt Date: 20130816
  Transmission Date: 20140515
  Serious: Yes (Hospitalization)
  Sender: FDA-Public Use
  Company Number: FR-TEVA-426044USA

PATIENT
  Age: 78 Year
  Sex: Female

DRUGS (5)
  1. LEVACT [Suspect]
     Indication: LYMPHOCYTIC LYMPHOMA
     Route: 041
     Dates: start: 20121003, end: 20130315
  2. MABTHERA [Suspect]
     Indication: LYMPHOCYTIC LYMPHOMA
     Route: 041
     Dates: start: 20121003, end: 20130315
  3. DIGOXINE [Concomitant]
  4. ISOPTINE [Concomitant]
  5. PLAVIX [Concomitant]

REACTIONS (1)
  - Colitis [Recovering/Resolving]
